FAERS Safety Report 17955081 (Version 1)
Quarter: 2020Q2

REPORT INFORMATION
  Report Type: Spontaneous
  Country: IL (occurrence: IL)
  Receive Date: 20200629
  Receipt Date: 20200629
  Transmission Date: 20200714
  Serious: Yes (Other)
  Sender: FDA-Public Use
  Company Number: IL-009507513-2006ISR009838

PATIENT
  Age: 57 Year
  Sex: Female

DRUGS (1)
  1. KEYTRUDA [Suspect]
     Active Substance: PEMBROLIZUMAB
     Indication: CERVIX CARCINOMA
     Dosage: UNK

REACTIONS (4)
  - Visual impairment [Not Recovered/Not Resolved]
  - Visual field defect [Unknown]
  - Optic nerve injury [Unknown]
  - Papilloedema [Unknown]
